FAERS Safety Report 7978198-8 (Version None)
Quarter: 2011Q4

REPORT INFORMATION
  Report Type: 
  Country: None (occurrence: None)
  Receive Date: 20111214
  Receipt Date: 20111201
  Transmission Date: 20120403
  Serious: Yes (Hospitalization)
  Sender: FDA-Public Use
  Company Number: US-RANBAXY-2011US-50928

PATIENT
  Age: 4 Day
  Sex: Male

DRUGS (2)
  1. ZIDOVUDINE [Suspect]
     Indication: HIV INFECTION
     Dosage: UNK
     Route: 048
  2. ZIDOVUDINE [Suspect]
     Dosage: 2 DOSE OF 67 MG
     Route: 065

REACTIONS (6)
  - MEDICATION ERROR [None]
  - TOXICITY TO VARIOUS AGENTS [None]
  - NEUTROPENIA [None]
  - ACCIDENTAL OVERDOSE [None]
  - ALANINE AMINOTRANSFERASE INCREASED [None]
  - METABOLIC ACIDOSIS [None]
